FAERS Safety Report 9897479 (Version 1)
Quarter: 2014Q1

REPORT INFORMATION
  Report Type: Spontaneous
  Country: AU (occurrence: AU)
  Receive Date: 20140214
  Receipt Date: 20140214
  Transmission Date: 20141002
  Serious: Yes (Other)
  Sender: FDA-Public Use
  Company Number: AU-ROXANE LABORATORIES, INC.-2014-RO-00180RO

PATIENT
  Age: 25 Year
  Sex: Male

DRUGS (2)
  1. METHADONE [Suspect]
     Indication: PRODUCT USED FOR UNKNOWN INDICATION
  2. DROPERIDOL [Suspect]
     Indication: AGITATION
     Route: 030

REACTIONS (3)
  - Electrocardiogram QT prolonged [Unknown]
  - Toxicity to various agents [Unknown]
  - Agitation [Unknown]
